FAERS Safety Report 6348748-6 (Version None)
Quarter: 2009Q3

REPORT INFORMATION
  Report Type: 
  Country: None (occurrence: None)
  Receive Date: 20090911
  Receipt Date: 20090827
  Transmission Date: 20100115
  Serious: No
  Sender: FDA-Public Use
  Company Number: US-AVENTIS-200917894US

PATIENT
  Sex: Female

DRUGS (3)
  1. APIDRA [Suspect]
     Indication: DIABETES MELLITUS
     Route: 051
  2. OPTICLIK (INSULIN INJECTION PEN) [Suspect]
     Indication: DIABETES MELLITUS
  3. LANTUS [Concomitant]
     Indication: DIABETES MELLITUS
     Route: 058

REACTIONS (1)
  - DIZZINESS [None]
